FAERS Safety Report 8137448 (Version 5)
Quarter: 2012Q4

REPORT INFORMATION
  Report Type: 
  Country: US (occurrence: US)
  Receive Date: 20110915
  Receipt Date: 20121218
  Transmission Date: 20130627
  Serious: Yes (Other)
  Sender: FDA-Public Use
  Company Number: US-ROCHE-790617

PATIENT
  Age: 76 Year
  Sex: Male

DRUGS (1)
  1. AVASTIN [Suspect]
     Indication: AGE-RELATED MACULAR DEGENERATION
     Dosage: DOSE: 1.25 MG/0.05 ML, FREQUENCY: 2. Left Eye
     Route: 050
     Dates: start: 20110708, end: 20110708

REACTIONS (5)
  - Endophthalmitis [Recovering/Resolving]
  - Blindness [Unknown]
  - Streptococcus test positive [Unknown]
  - Visual acuity reduced [Unknown]
  - Product quality issue [Unknown]
